FAERS Safety Report 6962117-7 (Version None)
Quarter: 2010Q3

REPORT INFORMATION
  Report Type: 
  Country: None (occurrence: None)
  Receive Date: 20100901
  Receipt Date: 20100901
  Transmission Date: 20110219
  Serious: Yes (Death)
  Sender: FDA-Public Use
  Company Number: None

PATIENT
  Age: 95 Year
  Sex: Female
  Weight: 93 kg

DRUGS (14)
  1. CEFTRIAXONE [Suspect]
     Indication: URINARY TRACT INFECTION
     Dosage: 1GM Q24H IV
     Route: 042
     Dates: start: 20100617, end: 20100622
  2. AUGMENTIN [Suspect]
     Dosage: 500MG BID PO
     Route: 048
     Dates: start: 20100622, end: 20100627
  3. PROTONIX [Concomitant]
  4. PAXIL [Concomitant]
  5. AMLODIPINE [Concomitant]
  6. VALSARTAN [Concomitant]
  7. CARVEDILOL [Concomitant]
  8. SINGULAIR [Concomitant]
  9. VITAMIN D [Concomitant]
  10. MULTI-VITAMIN [Concomitant]
  11. LORAZEPAM [Concomitant]
  12. LAPHAGAN [Concomitant]
  13. XALATAN [Concomitant]
  14. ZYRTEC [Concomitant]

REACTIONS (4)
  - CLOSTRIDIUM DIFFICILE COLITIS [None]
  - HYPOTENSION [None]
  - LETHARGY [None]
  - RENAL FAILURE ACUTE [None]
